FAERS Safety Report 12051241 (Version 2)
Quarter: 2016Q1

REPORT INFORMATION
  Report Type: Spontaneous
  Country: FR (occurrence: FR)
  Receive Date: 20160209
  Receipt Date: 20160217
  Transmission Date: 20160526
  Serious: Yes (Other)
  Sender: FDA-Public Use
  Company Number: PHHY2016FR017016

PATIENT
  Age: 15 Year
  Sex: Female

DRUGS (2)
  1. VOLTARENE [Suspect]
     Active Substance: DICLOFENAC SODIUM
     Indication: GROIN ABSCESS
     Dosage: 1 DF, TID
     Route: 048
     Dates: start: 20160108, end: 20160110
  2. AUGMENTIN [Concomitant]
     Active Substance: AMOXICILLIN\CLAVULANATE POTASSIUM
     Indication: PRODUCT USED FOR UNKNOWN INDICATION
     Dosage: UNK
     Route: 065

REACTIONS (4)
  - Abdominal pain [Recovered/Resolved]
  - Vomiting [Recovered/Resolved]
  - Medication error [Recovered/Resolved]
  - Wrong drug administered [Recovered/Resolved]

NARRATIVE: CASE EVENT DATE: 20160108
